FAERS Safety Report 8456276-7 (Version None)
Quarter: 2012Q2

REPORT INFORMATION
  Report Type: 
  Country: None (occurrence: None)
  Receive Date: 20120621
  Receipt Date: 20120612
  Transmission Date: 20120825
  Serious: Yes (Other)
  Sender: FDA-Public Use
  Company Number: US-BAYER-2012-034605

PATIENT
  Age: 32 Year
  Sex: Female

DRUGS (9)
  1. TRIAMTERENE [Concomitant]
     Dosage: 37.5-25 MG
     Route: 048
     Dates: start: 20110505
  2. BYSTOLIC [Concomitant]
     Dosage: 5 MG, UNK
     Route: 048
     Dates: start: 20110505
  3. YAZ [Suspect]
     Dosage: UNK
     Route: 048
     Dates: start: 20060101
  4. AZITHROMYCIN [Concomitant]
     Dosage: 250 MG, UNK
     Route: 048
  5. YASMIN [Suspect]
     Dosage: UNK
     Route: 048
     Dates: start: 20060101
  6. PROMETHAZINE [Concomitant]
     Dosage: 25 MG, UNK
     Route: 048
  7. DROSPIRENONE AND ETHINYL ESTRADIOL [Suspect]
     Dosage: UNK
     Route: 048
     Dates: start: 20060101
  8. HYDROCODONE BITARTRATE + ACETAMINOPHEN [Concomitant]
     Dosage: 5-500MG
     Route: 048
  9. CYMBALTA [Concomitant]
     Indication: BACK PAIN
     Dosage: 30 MG, UNK
     Route: 048

REACTIONS (4)
  - PAIN [None]
  - FEAR [None]
  - INJURY [None]
  - DEEP VEIN THROMBOSIS [None]
